FAERS Safety Report 9355687 (Version 1)
Quarter: 2013Q2

REPORT INFORMATION
  Report Type: Other
  Country: GB (occurrence: GB)
  Receive Date: 20130619
  Receipt Date: 20130619
  Transmission Date: 20140414
  Serious: Yes (Life-Threatening, Other)
  Sender: FDA-Public Use
  Company Number: GB-LUPIN PHARMACEUTICALS INC.-E2B_00000944

PATIENT
  Age: 33 Year
  Sex: Male
  Weight: 69.95 kg

DRUGS (6)
  1. QUETIAPINE [Suspect]
     Indication: MAJOR DEPRESSION
     Route: 048
     Dates: start: 20130503, end: 201305
  2. QUETIAPINE [Suspect]
     Route: 048
     Dates: start: 201305
  3. AMITRIPTYLINE [Suspect]
     Indication: DEPRESSION
     Route: 048
     Dates: start: 20130503
  4. AMITRIPTYLINE [Suspect]
     Route: 048
     Dates: start: 201305, end: 20130515
  5. CITALOPRAM [Concomitant]
     Indication: PRODUCT USED FOR UNKNOWN INDICATION
     Route: 065
  6. TEMAZEPAM [Concomitant]
     Indication: PRODUCT USED FOR UNKNOWN INDICATION
     Route: 065

REACTIONS (7)
  - Pulmonary embolism [Not Recovered/Not Resolved]
  - Bundle branch block right [Unknown]
  - Deep vein thrombosis [Not Recovered/Not Resolved]
  - Atelectasis [Not Recovered/Not Resolved]
  - Pain in extremity [Unknown]
  - Chest pain [Unknown]
  - Fibrin D dimer increased [Unknown]
